FAERS Safety Report 8360914-7 (Version None)
Quarter: 2012Q2

REPORT INFORMATION
  Report Type: 
  Country: None (occurrence: None)
  Receive Date: 20120515
  Receipt Date: 20120509
  Transmission Date: 20120825
  Serious: Yes (Death)
  Sender: FDA-Public Use
  Company Number: US-ROCHE-1007128

PATIENT
  Sex: Male
  Weight: 123 kg

DRUGS (6)
  1. RIBAVIRIN [Suspect]
     Indication: HEPATITIS C
     Route: 048
     Dates: start: 20110916, end: 20111007
  2. LISINOPRIL [Concomitant]
     Indication: HYPERTENSION
     Route: 048
     Dates: start: 20110318, end: 20111009
  3. TELAPREVIR [Suspect]
     Indication: DEPRESSION
     Route: 048
  4. PROZAC [Concomitant]
     Indication: DEPRESSION
     Route: 048
     Dates: start: 20110316, end: 20111009
  5. PEGASYS [Suspect]
     Indication: HEPATITIS C
     Route: 058
     Dates: start: 20110916, end: 20111009
  6. ZIAC [Concomitant]
     Indication: HYPERTENSION
     Dosage: AS REPORTED: 5-6.25 MG
     Route: 048
     Dates: start: 20110215, end: 20111009

REACTIONS (5)
  - ANAPHYLACTIC REACTION [None]
  - SWELLING FACE [None]
  - ANGIOEDEMA [None]
  - LARYNGOSPASM [None]
  - PHARYNGEAL OEDEMA [None]
